FAERS Safety Report 25383057 (Version 1)
Quarter: 2025Q2

REPORT INFORMATION
  Report Type: Spontaneous
  Country: CN (occurrence: CN)
  Receive Date: 20250602
  Receipt Date: 20250602
  Transmission Date: 20250717
  Serious: Yes (Hospitalization)
  Sender: CATALYST PHARMA
  Company Number: CN-CATALYSTPHARMACEUTICALPARTNERS-CN-CATA-25-00772

PATIENT
  Age: 6 Year
  Sex: Male

DRUGS (3)
  1. PERAMPANEL [Suspect]
     Active Substance: PERAMPANEL
     Indication: Epilepsy
     Dosage: 2.0 MILLIGRAM(S) (2 MILLIGRAM(S), 1 IN 1 DAY)
     Route: 048
     Dates: start: 20250426, end: 20250504
  2. PERAMPANEL [Suspect]
     Active Substance: PERAMPANEL
     Dosage: 4.0 MILLIGRAM(S) (4 MILLIGRAM(S), 1 IN 1 DAY)
     Route: 048
     Dates: start: 20250505, end: 20250507
  3. PERAMPANEL [Suspect]
     Active Substance: PERAMPANEL
     Dosage: 1.0 MILLIGRAM(S) (1 MILLIGRAM(S), 1 IN 1 DAY)
     Route: 048
     Dates: start: 20250508

REACTIONS (5)
  - Cognitive disorder [Recovering/Resolving]
  - Dyskinesia [Unknown]
  - Hallucination, auditory [Recovering/Resolving]
  - Hallucination [Recovering/Resolving]
  - Vomiting [Unknown]

NARRATIVE: CASE EVENT DATE: 20250508
